FAERS Safety Report 25407666 (Version 1)
Quarter: 2025Q2

REPORT INFORMATION
  Report Type: Spontaneous
  Country: CN (occurrence: CN)
  Receive Date: 20250606
  Receipt Date: 20250606
  Transmission Date: 20250717
  Serious: Yes (Death, Other)
  Sender: AMGEN
  Company Number: CN-AMGEN-CHNSP2025110662

PATIENT

DRUGS (1)
  1. BLINATUMOMAB [Suspect]
     Active Substance: BLINATUMOMAB
     Indication: B-cell type acute leukaemia
     Dosage: UNK, QD (MICROGRAM)
     Route: 065

REACTIONS (3)
  - Cardiac failure [Fatal]
  - Renal failure [Fatal]
  - Bone marrow leukaemic cell infiltration [Recovered/Resolved]
